FAERS Safety Report 22064680 (Version 1)
Quarter: 2023Q1

REPORT INFORMATION
  Report Type: Spontaneous
  Country: US (occurrence: None)
  Receive Date: 20230305
  Receipt Date: 20230305
  Transmission Date: 20230418
  Serious: Yes (Disabling)
  Sender: FDA-Public Use
  Company Number: None

PATIENT
  Age: 55 Year
  Sex: Female
  Weight: 83.25 kg

DRUGS (4)
  1. REPATHA [Suspect]
     Active Substance: EVOLOCUMAB
     Indication: Blood cholesterol increased
     Dosage: OTHER QUANTITY : 1 INJECTION(S);?
     Dates: start: 20230208, end: 20230222
  2. VALSARTAN [Concomitant]
     Active Substance: VALSARTAN
  3. LIVALO [Concomitant]
     Active Substance: PITAVASTATIN CALCIUM
  4. ENVEEL [Concomitant]

REACTIONS (7)
  - Burning sensation [None]
  - Frostbite [None]
  - Neuropathy peripheral [None]
  - Blood glucose increased [None]
  - Burning sensation [None]
  - Loss of personal independence in daily activities [None]
  - Anxiety [None]

NARRATIVE: CASE EVENT DATE: 20230223
